FAERS Safety Report 6507061-4 (Version None)
Quarter: 2009Q4

REPORT INFORMATION
  Report Type: 
  Country: None (occurrence: None)
  Receive Date: 20091221
  Receipt Date: 20091209
  Transmission Date: 20100525
  Serious: Yes (Other)
  Sender: FDA-Public Use
  Company Number: PHHY2009NO54212

PATIENT
  Sex: Female

DRUGS (2)
  1. TERBINAFINE HCL [Suspect]
     Indication: ONYCHOMYCOSIS
     Route: 048
  2. CIPRALEX [Concomitant]
     Indication: DEPRESSION
     Dosage: USED FOR 7 YEARS
     Route: 048

REACTIONS (2)
  - CATARACT [None]
  - CATARACT OPERATION [None]
